FAERS Safety Report 6766679-4 (Version None)
Quarter: 2010Q2

REPORT INFORMATION
  Report Type: 
  Country: None (occurrence: None)
  Receive Date: 20100611
  Receipt Date: 20100430
  Transmission Date: 20101027
  Serious: Yes (Death, Other)
  Sender: FDA-Public Use
  Company Number: US-BAXTER-2010BH004367

PATIENT
  Age: 55 Year
  Sex: Male

DRUGS (1)
  1. HEPARIN SODIUM [Suspect]
     Indication: DIALYSIS
     Route: 042

REACTIONS (8)
  - DECUBITUS ULCER [None]
  - DRUG HYPERSENSITIVITY [None]
  - HAEMATOMA [None]
  - HYPOTENSION [None]
  - PLATELET DISORDER [None]
  - RENAL FAILURE CHRONIC [None]
  - RESPIRATORY FAILURE [None]
  - SEPSIS [None]
